FAERS Safety Report 4973325-9 (Version None)
Quarter: 2006Q2

REPORT INFORMATION
  Report Type: 
  Country: None (occurrence: None)
  Receive Date: 20060414
  Receipt Date: 20060412
  Transmission Date: 20061013
  Serious: Yes (Hospitalization)
  Sender: FDA-Public Use
  Company Number: FR-JNJFOC-20060402607

PATIENT
  Age: 64 Year
  Sex: Male

DRUGS (11)
  1. TRAMADOL HCL [Suspect]
     Indication: DRUG USE FOR UNKNOWN INDICATION
  2. HEPARIN CALCIUM [Suspect]
     Indication: DRUG USE FOR UNKNOWN INDICATION
     Route: 058
  3. DIPYRIDAMOLE [Suspect]
     Indication: DRUG USE FOR UNKNOWN INDICATION
  4. DEXTROPROPOXYPHENE [Suspect]
     Indication: DRUG USE FOR UNKNOWN INDICATION
  5. GLYCERYL TRINITRATE [Concomitant]
     Route: 062
  6. BUFLOMEDIL [Concomitant]
  7. CALCITONIN [Concomitant]
  8. BROMAZEPAM [Concomitant]
  9. PARACETAMOL [Concomitant]
  10. CODEINE [Concomitant]
  11. FUROSEMIDE [Concomitant]

REACTIONS (4)
  - ACTIVATED PARTIAL THROMBOPLASTIN TIME PROLONGED [None]
  - BLISTER [None]
  - INJECTION SITE HAEMORRHAGE [None]
  - SEPTIC SHOCK [None]
